FAERS Safety Report 7329428-7 (Version None)
Quarter: 2011Q1

REPORT INFORMATION
  Report Type: 
  Country: None (occurrence: None)
  Receive Date: 20110303
  Receipt Date: 20110223
  Transmission Date: 20110831
  Serious: Yes (Hospitalization)
  Sender: FDA-Public Use
  Company Number: CN-GENZYME-CERZ-1001894

PATIENT
  Sex: Male
  Weight: 68 kg

DRUGS (2)
  1. CEREZYME [Suspect]
     Indication: GAUCHER'S DISEASE
     Dosage: 3600 U, Q4W
     Route: 042
     Dates: start: 20101205, end: 20110105
  2. CEREZYME [Suspect]
     Dosage: 50 U/KG, Q2W
     Route: 042
     Dates: start: 20090101, end: 20090101

REACTIONS (4)
  - FALL [None]
  - JOINT INJURY [None]
  - FEMUR FRACTURE [None]
  - TIBIA FRACTURE [None]
